FAERS Safety Report 7865546-2 (Version None)
Quarter: 2011Q4

REPORT INFORMATION
  Report Type: 
  Country: None (occurrence: None)
  Receive Date: 20111028
  Receipt Date: 20110114
  Transmission Date: 20120403
  Serious: No
  Sender: FDA-Public Use
  Company Number: US-GLAXOSMITHKLINE-A0906201A

PATIENT
  Age: 64 Year
  Sex: Male

DRUGS (5)
  1. ADVAIR DISKUS 100/50 [Suspect]
     Indication: CHRONIC OBSTRUCTIVE PULMONARY DISEASE
     Dosage: 1PUFF TWICE PER DAY
     Route: 055
     Dates: start: 20100801, end: 20110107
  2. PLAVIX [Concomitant]
  3. BUPROPION HCL [Concomitant]
  4. AMIODARONE HCL [Concomitant]
  5. TRICOR [Concomitant]

REACTIONS (5)
  - ABDOMINAL DISCOMFORT [None]
  - PHARYNGEAL OEDEMA [None]
  - FATIGUE [None]
  - COUGH [None]
  - LACRIMATION INCREASED [None]
